FAERS Safety Report 20998563 (Version 1)
Quarter: 2022Q2

REPORT INFORMATION
  Report Type: Spontaneous
  Country: US (occurrence: US)
  Receive Date: 20220623
  Receipt Date: 20220623
  Transmission Date: 20220721
  Serious: Yes (Other)
  Sender: FDA-Public Use
  Company Number: US-MYLANLABS-2022M1047227

PATIENT
  Age: 69 Year
  Sex: Female

DRUGS (6)
  1. CIPROFLOXACIN [Suspect]
     Active Substance: CIPROFLOXACIN
     Indication: Keratitis
     Dosage: UNK
     Route: 061
     Dates: start: 2014
  2. MOXIFLOXACIN [Suspect]
     Active Substance: MOXIFLOXACIN
     Indication: Keratitis
     Dosage: UNK, QID
     Route: 065
  3. CENEGERMIN-BKBJ [Suspect]
     Active Substance: CENEGERMIN-BKBJ
     Indication: Keratitis
     Dosage: TWO 8 WEEK COURSE
     Route: 061
     Dates: start: 201908
  4. DIFLUPREDNATE [Concomitant]
     Active Substance: DIFLUPREDNATE
     Indication: Keratitis
     Dosage: UNK, QD
     Route: 065
  5. PREDNISOLONE ACETATE [Concomitant]
     Active Substance: PREDNISOLONE ACETATE
     Indication: Keratitis
     Dosage: UNK, QD
     Route: 065
  6. ERYTHROMYCIN [Concomitant]
     Active Substance: ERYTHROMYCIN
     Indication: Keratitis
     Dosage: UNK, HS (AT BEDTIME)
     Route: 065

REACTIONS (2)
  - Corneal deposits [Not Recovered/Not Resolved]
  - Lenticular opacities [Not Recovered/Not Resolved]
